FAERS Safety Report 5390251-4 (Version None)
Quarter: 2007Q3

REPORT INFORMATION
  Report Type: 
  Country: None (occurrence: None)
  Receive Date: 20070716
  Receipt Date: 20061010
  Transmission Date: 20080115
  Serious: Yes (Hospitalization, Other)
  Sender: FDA-Public Use
  Company Number: MPS1-10596

PATIENT
  Age: 4 Year
  Sex: Male
  Weight: 17 kg

DRUGS (6)
  1. ALDURAZYME [Suspect]
     Indication: MUCOPOLYSACCHARIDOSIS I
     Dosage: 175 U/KG QWK IV
     Route: 042
  2. ALDURAZYME [Suspect]
     Indication: MUCOPOLYSACCHARIDOSIS I
     Dosage: 100 U/KG QWK IV
     Route: 042
     Dates: start: 20030221, end: 20040211
  3. ALDURAZYME [Suspect]
     Indication: MUCOPOLYSACCHARIDOSIS I
     Dosage: 1.4 MG/KG QWK IV
     Route: 042
     Dates: start: 20040216
  4. TELFAST [Concomitant]
  5. SOLU-MEDROL [Concomitant]
  6. DOLIPRANE [Concomitant]

REACTIONS (4)
  - COUGH [None]
  - ERYTHEMA [None]
  - OXYGEN SATURATION DECREASED [None]
  - URTICARIA [None]
